FAERS Safety Report 8100847-4 (Version None)
Quarter: 2012Q1

REPORT INFORMATION
  Report Type: 
  Country: None (occurrence: None)
  Receive Date: 20120129
  Receipt Date: 20110929
  Transmission Date: 20120608
  Serious: No
  Sender: FDA-Public Use
  Company Number: US-ABBOTT-11P-163-0859269-00

PATIENT
  Age: 38 Year
  Sex: Male

DRUGS (4)
  1. IMITREX [Concomitant]
     Indication: MIGRAINE
  2. HYDROCODONE BITARTRATE [Concomitant]
     Indication: BACK PAIN
  3. HUMIRA [Suspect]
     Indication: PSORIATIC ARTHROPATHY
     Dates: start: 20070101
  4. FLEXERIL [Concomitant]
     Indication: BACK PAIN

REACTIONS (3)
  - DRUG DOSE OMISSION [None]
  - INAPPROPRIATE SCHEDULE OF DRUG ADMINISTRATION [None]
  - INJECTION SITE PAIN [None]
